FAERS Safety Report 5196968-9 (Version None)
Quarter: 2006Q4

REPORT INFORMATION
  Report Type: 
  Country: None (occurrence: None)
  Receive Date: 20061227
  Receipt Date: 20061214
  Transmission Date: 20070319
  Serious: Yes (Other)
  Sender: FDA-Public Use
  Company Number: 2006154699

PATIENT
  Sex: Male

DRUGS (6)
  1. VIRACEPT [Suspect]
     Dosage: ORAL
     Route: 048
  2. COMBIVIR [Suspect]
     Indication: HIV TEST POSITIVE
     Dosage: ORAL
     Route: 048
  3. RETROVIR [Suspect]
     Indication: HIV TEST POSITIVE
     Dosage: INTRAVENOUS
     Route: 042
  4. BACTRIM [Concomitant]
  5. SPASFON (PHLOROGLUCINOL, TRIMETHYLPHLOROGLUCINOL) [Concomitant]
  6. IRON (IRON) [Concomitant]

REACTIONS (8)
  - ANAEMIA MACROCYTIC [None]
  - DRUG EXPOSURE DURING PREGNANCY [None]
  - EYE DISORDER [None]
  - NEONATAL DISORDER [None]
  - NEUTROPENIA NEONATAL [None]
  - PLATELET COUNT INCREASED [None]
  - PREMATURE CLOSURE OF CRANIAL SUTURES [None]
  - TALIPES [None]
